FAERS Safety Report 15159317 (Version 2)
Quarter: 2022Q1

REPORT INFORMATION
  Report Type: Report from Study
  Country: US (occurrence: US)
  Receive Date: 20180718
  Receipt Date: 20220107
  Transmission Date: 20220423
  Serious: Yes (Hospitalization)
  Sender: FDA-Public Use
  Company Number: US-PFIZER INC-2018281780

PATIENT
  Age: 27 Year
  Sex: Female
  Weight: 79.28 kg

DRUGS (5)
  1. VINCRISTINE SULFATE [Suspect]
     Active Substance: VINCRISTINE SULFATE
     Dosage: 1.5MG/M2 OVER 1 MINUTE OR INFUSION VIA MINIBAG ON DAY 1 OF CYCLES 5 AND 10, ON DAYS 1 AND 8 OF CYCLE
     Route: 042
  2. CAMPTOSAR [Suspect]
     Active Substance: IRINOTECAN HYDROCHLORIDE
     Dosage: 50MG/M2 OVER 90 MINUTES ON DAYS 1-5 OF CYCLES 2 AND 4
     Route: 042
  3. TEMSIROLIMUS [Suspect]
     Active Substance: TEMSIROLIMUS
     Dosage: 10 MG/M2, CYCLIC OVER 30-60 MINUTES ON DAYS 1, 8, AND 15 OF CYCLES 8, 9 AND 10
     Route: 042
  4. CYCLOPHOSPHAMIDE [Suspect]
     Active Substance: CYCLOPHOSPHAMIDE
     Dosage: 1200MG/M2 OVER 60 MINUTES ON DAY 1 OF CYCLES 1 AND 3, 5, 8 AND 10
     Route: 042
  5. DACTINOMYCIN [Suspect]
     Active Substance: DACTINOMYCIN
     Dosage: 0.05MG/KG OVER 1-5 MINUTES ON DAY 1 OF CYCLES 1 AND 3, 5, 8 AND 10
     Route: 042

REACTIONS (2)
  - Peripheral sensory neuropathy [Recovering/Resolving]
  - Pain [Recovering/Resolving]

NARRATIVE: CASE EVENT DATE: 20180520
